FAERS Safety Report 16749899 (Version 2)
Quarter: 2019Q3

REPORT INFORMATION
  Report Type: Spontaneous
  Country: JP (occurrence: JP)
  Receive Date: 20190828
  Receipt Date: 20190926
  Transmission Date: 20191005
  Serious: Yes (Other)
  Sender: FDA-Public Use
  Company Number: PHJP2019JP010852

PATIENT
  Age: 73 Year
  Sex: Female

DRUGS (1)
  1. EXELON PATCH [Suspect]
     Active Substance: RIVASTIGMINE
     Indication: PRODUCT USED FOR UNKNOWN INDICATION
     Dosage: 6.9 MG, QD (PATCH 7.5 CM2, 13.5 MG RIVASTIGMINE BASE)
     Route: 062

REACTIONS (2)
  - Loss of consciousness [Unknown]
  - General physical health deterioration [Unknown]
